FAERS Safety Report 10073220 (Version 2)
Quarter: 2014Q2

REPORT INFORMATION
  Report Type: Spontaneous
  Country: US (occurrence: US)
  Receive Date: 20140411
  Receipt Date: 20140512
  Transmission Date: 20141212
  Serious: Yes (Other)
  Sender: FDA-Public Use
  Company Number: US-GLAXOSMITHKLINE-A1068078A

PATIENT
  Age: 87 Year
  Sex: Female

DRUGS (1)
  1. MEKINIST [Suspect]
     Indication: MALIGNANT MELANOMA
     Dosage: 2MG PER DAY
     Route: 048
     Dates: start: 20140225

REACTIONS (5)
  - Peripheral swelling [Unknown]
  - Rash [Unknown]
  - Pharyngeal oedema [Unknown]
  - Blood pressure increased [Unknown]
  - Cough [Unknown]
